FAERS Safety Report 25300196 (Version 1)
Quarter: 2025Q2

REPORT INFORMATION
  Report Type: Spontaneous
  Country: US (occurrence: US)
  Receive Date: 20250512
  Receipt Date: 20250512
  Transmission Date: 20250716
  Serious: Yes (Hospitalization, Other)
  Sender: ACCORD
  Company Number: US-Accord-483895

PATIENT
  Age: 24 Year
  Sex: Female

DRUGS (3)
  1. METOPROLOL TARTRATE [Suspect]
     Active Substance: METOPROLOL TARTRATE
     Indication: Ventricular extrasystoles
  2. ENALAPRIL [Concomitant]
     Active Substance: ENALAPRIL
  3. METOPROLOL TARTRATE [Suspect]
     Active Substance: METOPROLOL TARTRATE
     Indication: Ventricular tachycardia

REACTIONS (8)
  - Adrenocortical insufficiency acute [Recovered/Resolved]
  - Abdominal pain [Recovered/Resolved]
  - Palpitations [Recovered/Resolved]
  - Vomiting [Recovered/Resolved]
  - Supraventricular tachycardia [Recovered/Resolved]
  - Nausea [Recovered/Resolved]
  - Blood pressure increased [Recovered/Resolved]
  - Off label use [Unknown]
